FAERS Safety Report 6762611-8 (Version None)
Quarter: 2010Q2

REPORT INFORMATION
  Report Type: 
  Country: None (occurrence: None)
  Receive Date: 20100609
  Receipt Date: 20100602
  Transmission Date: 20101027
  Serious: Yes (Hospitalization, Disabling)
  Sender: FDA-Public Use
  Company Number: US-MERCK-0808USA04790

PATIENT
  Age: 66 Year
  Sex: Female

DRUGS (12)
  1. VYTORIN [Suspect]
     Indication: BLOOD CHOLESTEROL INCREASED
     Route: 048
     Dates: start: 20061221, end: 20070110
  2. TYLENOL [Concomitant]
     Route: 065
  3. FOSAMAX [Concomitant]
     Route: 048
  4. APRESOLINE [Concomitant]
     Route: 065
  5. HUMALOG [Concomitant]
     Route: 065
  6. MANTAI [Concomitant]
     Route: 065
  7. ZOCOR [Suspect]
     Route: 048
  8. ALTACE [Concomitant]
     Route: 065
  9. SYNTHROID [Concomitant]
     Route: 065
  10. HYDROCHLOROTHIAZIDE [Concomitant]
     Route: 065
  11. ASPIRIN [Concomitant]
     Route: 065
  12. ATENOLOL [Concomitant]
     Route: 065

REACTIONS (14)
  - ALOPECIA [None]
  - COMPLEX REGIONAL PAIN SYNDROME [None]
  - DRUG TOXICITY [None]
  - GAIT DISTURBANCE [None]
  - MOVEMENT DISORDER [None]
  - MUSCLE DISORDER [None]
  - MYALGIA [None]
  - NERVE INJURY [None]
  - NERVE ROOT COMPRESSION [None]
  - NEUROMYOPATHY [None]
  - NEUROPATHY PERIPHERAL [None]
  - OEDEMA [None]
  - PAIN IN EXTREMITY [None]
  - RADICULOPATHY [None]
